FAERS Safety Report 10790095 (Version 2)
Quarter: 2015Q2

REPORT INFORMATION
  Report Type: Report from Study
  Country: US (occurrence: US)
  Receive Date: 20150212
  Receipt Date: 20150402
  Transmission Date: 20150821
  Serious: Yes (Death, Other)
  Sender: FDA-Public Use
  Company Number: US-ALEXION PHARMACEUTICALS INC.-A201500455

PATIENT

DRUGS (3)
  1. SOLIRIS [Suspect]
     Active Substance: ECULIZUMAB
     Indication: THROMBOTIC MICROANGIOPATHY
     Dosage: 1200 MG, SINGLE
     Route: 042
     Dates: start: 20150203, end: 20150203
  2. SOLIRIS [Suspect]
     Active Substance: ECULIZUMAB
     Indication: OFF LABEL USE
  3. SOLIRIS [Suspect]
     Active Substance: ECULIZUMAB
     Indication: HAEMOLYTIC URAEMIC SYNDROME
     Dosage: 900 MG, UNK
     Route: 042
     Dates: start: 20150123, end: 20150131

REACTIONS (5)
  - Haemolytic uraemic syndrome [Fatal]
  - Adenovirus infection [Fatal]
  - Gastrointestinal haemorrhage [Fatal]
  - Bone marrow failure [Fatal]
  - Aplastic anaemia [Fatal]

NARRATIVE: CASE EVENT DATE: 20150205
